FAERS Safety Report 7031953-3 (Version None)
Quarter: 2010Q4

REPORT INFORMATION
  Report Type: 
  Country: None (occurrence: None)
  Receive Date: 20101007
  Receipt Date: 20101004
  Transmission Date: 20110411
  Serious: Yes (Death, Hospitalization, Other)
  Sender: FDA-Public Use
  Company Number: US-ELI_LILLY_AND_COMPANY-US200910005584

PATIENT
  Sex: Male
  Weight: 102.49 kg

DRUGS (9)
  1. BYETTA [Suspect]
     Indication: TYPE 2 DIABETES MELLITUS
     Dosage: UNK, UNKNOWN
     Route: 065
     Dates: start: 20051024, end: 20060417
  2. LANTUS [Concomitant]
     Indication: TYPE 2 DIABETES MELLITUS
  3. NOVOLOG [Concomitant]
     Indication: TYPE 2 DIABETES MELLITUS
  4. HYDROCHLOROTHIAZIDE [Concomitant]
     Indication: HYPERTENSION
  5. LOTREL [Concomitant]
     Indication: HYPERTENSION
  6. ZETIA [Concomitant]
     Indication: HYPERLIPIDAEMIA
  7. CRESTOR [Concomitant]
     Indication: HYPERLIPIDAEMIA
  8. FOLBIC [Concomitant]
     Indication: HYPERLIPIDAEMIA
  9. ASPIRIN [Concomitant]
     Indication: HYPERLIPIDAEMIA

REACTIONS (6)
  - DIARRHOEA [None]
  - NAUSEA [None]
  - PANCREATIC CARCINOMA METASTATIC [None]
  - PANCREATITIS ACUTE [None]
  - THYROID NEOPLASM [None]
  - VOMITING [None]
